FAERS Safety Report 8380545-2 (Version None)
Quarter: 2012Q2

REPORT INFORMATION
  Report Type: 
  Country: None (occurrence: None)
  Receive Date: 20120523
  Receipt Date: 20120518
  Transmission Date: 20120825
  Serious: Yes (Other)
  Sender: FDA-Public Use
  Company Number: CA-ROCHE-1066818

PATIENT
  Sex: Male
  Weight: 78.088 kg

DRUGS (7)
  1. BISACODIL [Concomitant]
  2. APO-PROCHLORAZINE [Concomitant]
  3. DEXAMETHASONE [Concomitant]
  4. AVASTIN [Suspect]
     Dates: start: 20120425
  5. AVASTIN [Suspect]
     Indication: GLIOBLASTOMA
     Dosage: THERAPY WAS ONGOING
     Route: 042
     Dates: start: 20120104, end: 20120509
  6. KEPPRA [Concomitant]
  7. AVASTIN [Suspect]
     Dates: start: 20120229

REACTIONS (3)
  - NEOPLASM [None]
  - CONVULSION [None]
  - DISEASE PROGRESSION [None]
